FAERS Safety Report 14634987 (Version 1)
Quarter: 2018Q1

REPORT INFORMATION
  Report Type: Spontaneous
  Country: US (occurrence: US)
  Receive Date: 20180314
  Receipt Date: 20180314
  Transmission Date: 20180509
  Serious: Yes (Death, Life-Threatening, Hospitalization)
  Sender: FDA-Public Use
  Company Number: US-ROCHE-2089730

PATIENT
  Age: 68 Year
  Sex: Female

DRUGS (1)
  1. ACTIVASE [Suspect]
     Active Substance: ALTEPLASE
     Indication: CEREBROVASCULAR ACCIDENT
     Dosage: ONGOING: NO
     Route: 065
     Dates: start: 20180114, end: 20180114

REACTIONS (2)
  - Subarachnoid haemorrhage [Fatal]
  - Vascular occlusion [Unknown]
